FAERS Safety Report 17282328 (Version 1)
Quarter: 2020Q1

REPORT INFORMATION
  Report Type: Spontaneous
  Country: TR (occurrence: TR)
  Receive Date: 20200117
  Receipt Date: 20200117
  Transmission Date: 20200409
  Serious: Yes (Other)
  Sender: FDA-Public Use
  Company Number: TR-TEVA-2020-TR-1171201

PATIENT
  Age: 65 Year
  Sex: Male

DRUGS (5)
  1. METHYLPREDNISOLONE. [Suspect]
     Active Substance: METHYLPREDNISOLONE
     Indication: DIFFUSE LARGE B-CELL LYMPHOMA STAGE II
     Dosage: R-CHOP REGIMEN FOR FIVE DAYS, THREE WEEK CYCLE
     Route: 065
  2. VINCRISTINE [Suspect]
     Active Substance: VINCRISTINE
     Indication: DIFFUSE LARGE B-CELL LYMPHOMA STAGE II
     Dosage: R-CHOP REGIMEN; THREE WEEK CYCLE
     Route: 065
  3. DOXORUBICIN [Suspect]
     Active Substance: DOXORUBICIN
     Indication: DIFFUSE LARGE B-CELL LYMPHOMA STAGE II
     Dosage: R-CHOP REGIMEN ON DAY 1; THREE WEEK CYCLE
     Route: 065
  4. RITUXIMAB. [Suspect]
     Active Substance: RITUXIMAB
     Indication: DIFFUSE LARGE B-CELL LYMPHOMA STAGE II
     Dosage: R-CHOP REGIMEN; THREE WEEK CYCLE
     Route: 065
  5. CYCLOPHOSPHAMIDE. [Suspect]
     Active Substance: CYCLOPHOSPHAMIDE
     Indication: DIFFUSE LARGE B-CELL LYMPHOMA STAGE II
     Dosage: R-CHOP REGIMEN ON DAY 1; THREE WEEK CYCLE
     Route: 065

REACTIONS (1)
  - Kaposi^s sarcoma [Recovered/Resolved]
